FAERS Safety Report 16930870 (Version 1)
Quarter: 2019Q4

REPORT INFORMATION
  Report Type: Spontaneous
  Country: US (occurrence: US)
  Receive Date: 20191017
  Receipt Date: 20191017
  Transmission Date: 20200122
  Serious: Yes (Life-Threatening)
  Sender: FDA-Public Use
  Company Number: None

PATIENT
  Age: 39 Year
  Sex: Male
  Weight: 99 kg

DRUGS (1)
  1. EPIPEN [Suspect]
     Active Substance: EPINEPHRINE
     Indication: HYPERSENSITIVITY
     Route: 030

REACTIONS (8)
  - Speech disorder [None]
  - Oxygen saturation decreased [None]
  - Hyperventilation [None]
  - Paraesthesia [None]
  - Device use issue [None]
  - Hypoaesthesia [None]
  - Shock [None]
  - Vomiting [None]

NARRATIVE: CASE EVENT DATE: 20191005
